FAERS Safety Report 5889623-0 (Version None)
Quarter: 2008Q3

REPORT INFORMATION
  Report Type: 
  Country: None (occurrence: None)
  Receive Date: 20080919
  Receipt Date: 20080916
  Transmission Date: 20090109
  Serious: Yes (Hospitalization)
  Sender: FDA-Public Use
  Company Number: B0536264A

PATIENT
  Age: 33 Year
  Sex: Female

DRUGS (7)
  1. PAXIL [Suspect]
     Indication: PANIC DISORDER
     Route: 048
     Dates: start: 20080902, end: 20080902
  2. BROTIZOLAM [Suspect]
     Indication: DRUG USE FOR UNKNOWN INDICATION
  3. ETIZOLAM [Suspect]
     Indication: DRUG USE FOR UNKNOWN INDICATION
     Dates: start: 20080902, end: 20080902
  4. LENDORMIN [Concomitant]
     Indication: INSOMNIA
     Route: 048
     Dates: start: 20080730
  5. LENDORMIN [Concomitant]
     Route: 048
     Dates: start: 20080902, end: 20080902
  6. DEPAS [Concomitant]
     Indication: INSOMNIA
     Route: 048
     Dates: start: 20080402
  7. DEPAS [Concomitant]
     Route: 048
     Dates: start: 20080902, end: 20080902

REACTIONS (4)
  - ALTERED STATE OF CONSCIOUSNESS [None]
  - HYPOAESTHESIA [None]
  - MULTIPLE DRUG OVERDOSE INTENTIONAL [None]
  - SUICIDE ATTEMPT [None]
